FAERS Safety Report 17656174 (Version 2)
Quarter: 2020Q2

REPORT INFORMATION
  Report Type: Spontaneous
  Country: US (occurrence: US)
  Receive Date: 20200410
  Receipt Date: 20200417
  Transmission Date: 20200713
  Serious: Yes (Death, Other)
  Sender: FDA-Public Use
  Company Number: US-DSJP-DSU-2020-110955

PATIENT

DRUGS (1)
  1. ENHERTU [Suspect]
     Active Substance: FAM-TRASTUZUMAB DERUXTECAN-NXKI
     Indication: PRODUCT USED FOR UNKNOWN INDICATION
     Dosage: 100 MG
     Route: 042
     Dates: start: 202003, end: 2020

REACTIONS (8)
  - Hepatic function abnormal [Unknown]
  - Pelvic abscess [Unknown]
  - Pyrexia [Unknown]
  - Cough [Unknown]
  - Haemoptysis [Unknown]
  - Septic shock [Fatal]
  - Dyspnoea [Unknown]
  - Respiratory failure [Fatal]

NARRATIVE: CASE EVENT DATE: 2020
